FAERS Safety Report 5916261-3 (Version None)
Quarter: 2008Q4

REPORT INFORMATION
  Report Type: 
  Country: None (occurrence: None)
  Receive Date: 20081013
  Receipt Date: 20081002
  Transmission Date: 20090506
  Serious: Yes (Hospitalization)
  Sender: FDA-Public Use
  Company Number: PHHY2008JP23595

PATIENT
  Sex: Female

DRUGS (3)
  1. PARLODEL [Suspect]
     Indication: BLOOD PROLACTIN INCREASED
     Dosage: 2 DF
     Route: 048
     Dates: start: 20080101, end: 20080501
  2. PARLODEL [Suspect]
     Dosage: 8 DF
     Route: 048
     Dates: start: 20080501
  3. PARLODEL [Suspect]
     Dosage: 2 DF
     Route: 048

REACTIONS (4)
  - DELUSION [None]
  - DYSGRAPHIA [None]
  - HALLUCINATION [None]
  - MEMORY IMPAIRMENT [None]
